FAERS Safety Report 5078081-4 (Version None)
Quarter: 2006Q3

REPORT INFORMATION
  Report Type: 
  Country: None (occurrence: None)
  Receive Date: 20060720
  Receipt Date: 20060306
  Transmission Date: 20061208
  Serious: Yes (Hospitalization)
  Sender: FDA-Public Use
  Company Number: 2006MP000313

PATIENT
  Age: 52 Year
  Sex: Male

DRUGS (7)
  1. AGGRASTAT [Suspect]
     Dosage: 0.25 MG/ML;QD;IV
     Route: 042
     Dates: start: 20060123, end: 20060123
  2. ASPIRIN [Suspect]
     Indication: ARTERIOSCLEROSIS
     Dosage: 75 MG;QD;PO
     Route: 048
  3. PLAVIX [Suspect]
     Indication: ARTERIOSCLEROSIS
     Dosage: 75 MG;QD;PO
     Route: 048
  4. ACETAMINOPHEN [Concomitant]
  5. DALTEPARIN SODIUM [Concomitant]
  6. METOPROLOL TARTRATE [Concomitant]
  7. MORPHINE [Concomitant]

REACTIONS (3)
  - CHILLS [None]
  - HAEMATEMESIS [None]
  - PYREXIA [None]
